FAERS Safety Report 6477452-9 (Version None)
Quarter: 2009Q4

REPORT INFORMATION
  Report Type: 
  Country: None (occurrence: None)
  Receive Date: 20091207
  Receipt Date: 20091112
  Transmission Date: 20100525
  Serious: Yes (Death)
  Sender: FDA-Public Use
  Company Number: FR-SANOFI-AVENTIS-2009SA001286

PATIENT
  Age: 53 Year
  Sex: Male

DRUGS (7)
  1. METHOTREXATE [Suspect]
     Indication: PSORIATIC ARTHROPATHY
     Route: 048
     Dates: end: 20090124
  2. LASILIX FAIBLE [Suspect]
     Route: 048
  3. REMICADE [Suspect]
     Route: 041
     Dates: start: 20070921, end: 20081125
  4. ARIXTRA [Suspect]
     Dosage: DOSE:1 UNIT(S)
     Route: 042
     Dates: start: 20080901
  5. APROVEL [Suspect]
     Route: 048
  6. ISOPTIN [Suspect]
     Route: 048
  7. ELISOR [Suspect]
     Route: 048

REACTIONS (7)
  - COUGH [None]
  - DYSPNOEA [None]
  - HYPOXIA [None]
  - PNEUMONIA LEGIONELLA [None]
  - PRODUCTIVE COUGH [None]
  - PYREXIA [None]
  - RESPIRATORY DISTRESS [None]
